FAERS Safety Report 7067891-X (Version None)
Quarter: 2010Q4

REPORT INFORMATION
  Report Type: 
  Country: None (occurrence: None)
  Receive Date: 20101004
  Receipt Date: 20100922
  Transmission Date: 20110411
  Serious: Yes (Hospitalization)
  Sender: FDA-Public Use
  Company Number: 20100907CINRY1599

PATIENT
  Age: 48 Year
  Sex: Female
  Weight: 56.6996 kg

DRUGS (2)
  1. CINRYZE [Suspect]
     Indication: HEREDITARY ANGIOEDEMA
     Dosage: (500 UNIT, 1 IN 4 D), INTRAVENOUS
     Route: 042
     Dates: start: 20100201, end: 20100901
  2. CINRYZE [Suspect]
     Indication: PROPHYLAXIS
     Dosage: (500 UNIT, 1 IN 4 D), INTRAVENOUS
     Route: 042
     Dates: start: 20100201, end: 20100901

REACTIONS (3)
  - BACTERIAL INFECTION [None]
  - DEVICE RELATED INFECTION [None]
  - POOR VENOUS ACCESS [None]
